FAERS Safety Report 9089637 (Version 1)
Quarter: 2013Q1

REPORT INFORMATION
  Report Type: Spontaneous
  Country: US (occurrence: US)
  Receive Date: 20130131
  Receipt Date: 20130131
  Transmission Date: 20140127
  Serious: Yes (Other)
  Sender: FDA-Public Use
  Company Number: CHPA2013US001697

PATIENT
  Sex: Male

DRUGS (2)
  1. BENEFIBER W/ WHEAT DEXTRIN [Suspect]
     Indication: BOWEL MOVEMENT IRREGULARITY
     Dosage: UNK, EVERY OTHER DAY OR TWO
     Route: 048
  2. MUSCLE RELAXANTS (NOS) [Suspect]
     Indication: HEADACHE
     Dosage: UNK, UNK

REACTIONS (7)
  - Headache [Unknown]
  - Eye pain [Unknown]
  - Nervous system disorder [Unknown]
  - Malaise [Not Recovered/Not Resolved]
  - Road traffic accident [Unknown]
  - Constipation [Not Recovered/Not Resolved]
  - Off label use [Unknown]
